FAERS Safety Report 4362982-6 (Version None)
Quarter: 2004Q2

REPORT INFORMATION
  Report Type: 
  Country: None (occurrence: None)
  Receive Date: 20040517
  Receipt Date: 20040406
  Transmission Date: 20050107
  Serious: No
  Sender: FDA-Public Use
  Company Number: S04-USA-01925-01

PATIENT
  Age: 84 Year
  Sex: Female

DRUGS (7)
  1. NAMENDA [Suspect]
     Indication: DEMENTIA ALZHEIMER'S TYPE
     Dosage: 10 MG BID PO
     Route: 048
     Dates: start: 20040325, end: 20040326
  2. SYNTHROID [Concomitant]
  3. NORVASC [Concomitant]
  4. CELEXA [Concomitant]
  5. CLARITIN [Concomitant]
  6. XANAX [Concomitant]
  7. REMINYL [Concomitant]

REACTIONS (5)
  - CONFUSIONAL STATE [None]
  - FALL [None]
  - MEMORY IMPAIRMENT [None]
  - PSYCHOMOTOR HYPERACTIVITY [None]
  - SPEECH DISORDER [None]
